FAERS Safety Report 5003125-5 (Version None)
Quarter: 2006Q2

REPORT INFORMATION
  Report Type: 
  Country: None (occurrence: None)
  Receive Date: 20060516
  Receipt Date: 20051011
  Transmission Date: 20061013
  Serious: Yes (Hospitalization)
  Sender: FDA-Public Use
  Company Number: HU-ROCHE-420645

PATIENT
  Age: 34 Year
  Sex: Male
  Weight: 94 kg

DRUGS (3)
  1. XENICAL [Suspect]
     Indication: OBESITY
     Dosage: FREQUENCY OF DOSING NOT REPORTED.
     Route: 048
     Dates: start: 20050820, end: 20050929
  2. SUPRAX [Concomitant]
     Dosage: PATIENT RECEIVED SUPRAX BECAUSE OF INFECTION (NOT DEFINED).
     Dates: start: 20050915
  3. 1 CONCOMITANT DRUG [Concomitant]
     Dosage: DRUG NAME REPORTED AS MIXTURA PECTORALIS. PATIENT RECEIVED MIXTURA PECTORALIS BECAUSE OF INFECTION +
     Dates: start: 20050915

REACTIONS (1)
  - AUTOIMMUNE THROMBOCYTOPENIA [None]
